FAERS Safety Report 8032845-3 (Version None)
Quarter: 2011Q4

REPORT INFORMATION
  Report Type: 
  Country: None (occurrence: None)
  Receive Date: 20111228
  Receipt Date: 20111214
  Transmission Date: 20120403
  Serious: Yes (Other)
  Sender: FDA-Public Use
  Company Number: 2011SP058893

PATIENT
  Sex: Female

DRUGS (3)
  1. PEG-INTRON [Suspect]
     Indication: HEPATITIS C
     Dates: start: 20111114
  2. RIBAVIRIN [Suspect]
     Indication: HEPATITIS C
     Dates: start: 20111114
  3. VICTRELIS [Suspect]
     Indication: HEPATITIS C
     Dates: start: 20111212

REACTIONS (10)
  - ABDOMINAL DISTENSION [None]
  - THYROID DISORDER [None]
  - DYSPNOEA [None]
  - INSOMNIA [None]
  - SOMNOLENCE [None]
  - PLATELET COUNT DECREASED [None]
  - BLOOD GLUCOSE ABNORMAL [None]
  - MUSCLE SPASMS [None]
  - ASTHENIA [None]
  - TREMOR [None]
